FAERS Safety Report 6545725-7 (Version None)
Quarter: 2010Q1

REPORT INFORMATION
  Report Type: 
  Country: None (occurrence: None)
  Receive Date: 20100121
  Receipt Date: 20100112
  Transmission Date: 20100710
  Serious: Yes (Other)
  Sender: FDA-Public Use
  Company Number: US-PFIZER INC-2010004967

PATIENT
  Age: 54 Year
  Sex: Male
  Weight: 96.145 kg

DRUGS (4)
  1. CHANTIX [Suspect]
  2. DOXYCYCLINE HYCLATE [Suspect]
  3. EFFEXOR [Suspect]
  4. AMBIEN [Suspect]

REACTIONS (6)
  - AGITATION [None]
  - CONFUSIONAL STATE [None]
  - DEPRESSION [None]
  - MEMORY IMPAIRMENT [None]
  - PSYCHOMOTOR HYPERACTIVITY [None]
  - SLEEP DISORDER [None]
